FAERS Safety Report 15564171 (Version 2)
Quarter: 2018Q4

REPORT INFORMATION
  Report Type: Spontaneous
  Country: FR (occurrence: FR)
  Receive Date: 20181030
  Receipt Date: 20181201
  Transmission Date: 20190205
  Serious: Yes (Other)
  Sender: FDA-Public Use
  Company Number: FR-AUROBINDO-AUR-APL-2018-052352

PATIENT
  Age: 83 Year
  Sex: Female
  Weight: 58 kg

DRUGS (4)
  1. PROLIA [Suspect]
     Active Substance: DENOSUMAB
     Dosage: 1 DOSAGE FORM EVERY SIX MONTHS
     Route: 065
     Dates: start: 201206, end: 201706
  2. PREDNISONE. [Suspect]
     Active Substance: PREDNISONE
     Indication: POLYMYALGIA RHEUMATICA
     Dosage: 1 MILLIGRAM, DAILY (1 MG, QD)
     Route: 065
     Dates: start: 201310
  3. PROLIA [Suspect]
     Active Substance: DENOSUMAB
     Indication: OSTEOPOROSIS
     Dosage: 1 DOSAGE FORM EVERY SIX MONTHS
     Route: 058
     Dates: start: 201204
  4. CORTISONE [Concomitant]
     Active Substance: CORTISONE\HYDROCORTISONE
     Indication: PRODUCT USED FOR UNKNOWN INDICATION
     Dosage: SMALL DOSE
     Route: 065

REACTIONS (2)
  - Hypercalcaemia [Not Recovered/Not Resolved]
  - Spinal compression fracture [Recovering/Resolving]

NARRATIVE: CASE EVENT DATE: 201806
